FAERS Safety Report 8313246-7 (Version None)
Quarter: 2012Q2

REPORT INFORMATION
  Report Type: 
  Country: None (occurrence: None)
  Receive Date: 20120424
  Receipt Date: 20120412
  Transmission Date: 20120825
  Serious: Yes (Hospitalization)
  Sender: FDA-Public Use
  Company Number: 2012FO001065

PATIENT
  Age: 68 Year
  Sex: Male

DRUGS (2)
  1. SOLARAZE [Suspect]
     Indication: PRODUCT USED FOR UNKNOWN INDICATION
     Dosage: ;BID;TOP;BID;TOP
     Route: 061
     Dates: start: 20120322, end: 20120323
  2. SOLARAZE [Suspect]
     Indication: PRODUCT USED FOR UNKNOWN INDICATION
     Dosage: ;BID;TOP;BID;TOP
     Route: 061
     Dates: start: 20110101, end: 20110101

REACTIONS (2)
  - SWELLING FACE [None]
  - ERYTHEMA [None]
